FAERS Safety Report 5587299-3 (Version None)
Quarter: 2008Q1

REPORT INFORMATION
  Report Type: 
  Country: None (occurrence: None)
  Receive Date: 20080110
  Receipt Date: 20071229
  Transmission Date: 20080703
  Serious: Yes (Other)
  Sender: FDA-Public Use
  Company Number: US-PFIZER INC-2008000574

PATIENT
  Age: 60 Year
  Sex: Male
  Weight: 68.181 kg

DRUGS (6)
  1. CELEBREX [Suspect]
     Indication: ARTHRITIS
  2. CHANTIX [Suspect]
     Indication: SMOKING CESSATION THERAPY
  3. ACCUPRIL [Concomitant]
  4. AZULFIDINE EN-TABS [Concomitant]
  5. PRILOSEC [Concomitant]
  6. VITAMIN B-12 [Concomitant]

REACTIONS (5)
  - ARTHRITIS [None]
  - GAIT DISTURBANCE [None]
  - RENAL CELL CARCINOMA [None]
  - SLEEP DISORDER [None]
  - THERAPEUTIC RESPONSE DECREASED [None]
